FAERS Safety Report 5308035-1 (Version None)
Quarter: 2007Q1

REPORT INFORMATION
  Report Type: 
  Country: None (occurrence: None)
  Receive Date: 20070130
  Receipt Date: 20060113
  Transmission Date: 20070707
  Serious: Yes (Hospitalization)
  Sender: FDA-Public Use
  Company Number: 432329

PATIENT
  Age: 56 Year
  Sex: Female
  Weight: 78 kg

DRUGS (9)
  1. COPEGUS [Suspect]
     Indication: HEPATITIS C
     Dosage: 600 MG 2 PER DAY ORAL
     Route: 048
     Dates: start: 20050627, end: 20051129
  2. PROCRIT [Concomitant]
  3. PEGASYS [Concomitant]
  4. TRUVADA [Concomitant]
  5. NORVIR [Concomitant]
  6. REYATAZ [Concomitant]
  7. VALTREX [Concomitant]
  8. DIFLUCAN [Concomitant]
  9. MULTIVITAMIN [Concomitant]

REACTIONS (1)
  - ANAEMIA [None]
